FAERS Safety Report 11883884 (Version 1)
Quarter: 2016Q1

REPORT INFORMATION
  Report Type: Report from Study
  Country: JP (occurrence: JP)
  Receive Date: 20160101
  Receipt Date: 20160101
  Transmission Date: 20160526
  Serious: Yes (Hospitalization)
  Sender: FDA-Public Use
  Company Number: JP-ASTRAZENECA-2015SF02976

PATIENT
  Age: 13535 Day
  Sex: Male

DRUGS (50)
  1. AZD6244 [Suspect]
     Active Substance: SELUMETINIB
     Indication: EGFR GENE MUTATION
     Route: 048
     Dates: start: 20150825, end: 20150831
  2. AZD6244 [Suspect]
     Active Substance: SELUMETINIB
     Indication: NON-SMALL CELL LUNG CANCER
     Route: 048
     Dates: start: 20150922, end: 20150922
  3. LOXOPROFEN SODIUM [Concomitant]
     Active Substance: LOXOPROFEN SODIUM
     Indication: CANCER PAIN
     Route: 048
  4. BETAMETHASONE - D-CHLORPHENIRAMINE MALEATE MIXT [Concomitant]
     Indication: DERMATITIS ATOPIC
     Route: 048
     Dates: start: 20150812
  5. OXYCODONE HYDROCHLORIDE. [Concomitant]
     Active Substance: OXYCODONE HYDROCHLORIDE
     Indication: CANCER PAIN
     Route: 048
     Dates: start: 20151007
  6. AZD6244 [Suspect]
     Active Substance: SELUMETINIB
     Indication: NON-SMALL CELL LUNG CANCER
     Route: 048
     Dates: start: 20150707, end: 20150713
  7. AZD6244 [Suspect]
     Active Substance: SELUMETINIB
     Indication: NON-SMALL CELL LUNG CANCER
     Route: 048
     Dates: start: 20150728, end: 20150803
  8. AZD6244 [Suspect]
     Active Substance: SELUMETINIB
     Indication: EGFR GENE MUTATION
     Route: 048
     Dates: start: 20150811, end: 20150817
  9. AZD6244 [Suspect]
     Active Substance: SELUMETINIB
     Indication: EGFR GENE MUTATION
     Route: 048
     Dates: start: 20150901, end: 20150907
  10. MINOCYCLINE HYDROCHLORIDE. [Concomitant]
     Active Substance: MINOCYCLINE HYDROCHLORIDE
     Indication: DERMATITIS ACNEIFORM
     Route: 048
     Dates: start: 20150812
  11. TAGRISSO [Suspect]
     Active Substance: OSIMERTINIB
     Indication: EGFR GENE MUTATION
     Route: 048
     Dates: start: 20150616, end: 20151020
  12. AZD6244 [Suspect]
     Active Substance: SELUMETINIB
     Indication: EGFR GENE MUTATION
     Route: 048
     Dates: start: 20150804, end: 20150810
  13. AZD6244 [Suspect]
     Active Substance: SELUMETINIB
     Indication: NON-SMALL CELL LUNG CANCER
     Route: 048
     Dates: start: 20150825, end: 20150831
  14. AZD6244 [Suspect]
     Active Substance: SELUMETINIB
     Indication: NON-SMALL CELL LUNG CANCER
     Route: 048
     Dates: start: 20150908, end: 20150914
  15. AZD6244 [Suspect]
     Active Substance: SELUMETINIB
     Indication: EGFR GENE MUTATION
     Route: 048
     Dates: start: 20150915, end: 20150921
  16. AZD6244 [Suspect]
     Active Substance: SELUMETINIB
     Indication: EGFR GENE MUTATION
     Route: 048
     Dates: start: 20151006, end: 20151012
  17. AZD6244 [Suspect]
     Active Substance: SELUMETINIB
     Indication: EGFR GENE MUTATION
     Route: 048
     Dates: start: 20151020, end: 20151020
  18. AZD6244 [Suspect]
     Active Substance: SELUMETINIB
     Indication: EGFR GENE MUTATION
     Route: 048
     Dates: start: 20150922, end: 20150922
  19. AZD6244 [Suspect]
     Active Substance: SELUMETINIB
     Indication: EGFR GENE MUTATION
     Route: 048
     Dates: start: 20151013, end: 20151019
  20. AZD6244 [Suspect]
     Active Substance: SELUMETINIB
     Indication: EGFR GENE MUTATION
     Route: 048
     Dates: start: 20150616, end: 20150622
  21. AZD6244 [Suspect]
     Active Substance: SELUMETINIB
     Indication: EGFR GENE MUTATION
     Route: 048
     Dates: start: 20150714, end: 20150720
  22. AZD6244 [Suspect]
     Active Substance: SELUMETINIB
     Indication: EGFR GENE MUTATION
     Route: 048
     Dates: start: 20150728, end: 20150803
  23. AZD6244 [Suspect]
     Active Substance: SELUMETINIB
     Indication: NON-SMALL CELL LUNG CANCER
     Route: 048
     Dates: start: 20150804, end: 20150810
  24. AZD6244 [Suspect]
     Active Substance: SELUMETINIB
     Indication: NON-SMALL CELL LUNG CANCER
     Route: 048
     Dates: start: 20150818, end: 20150824
  25. AZD6244 [Suspect]
     Active Substance: SELUMETINIB
     Indication: NON-SMALL CELL LUNG CANCER
     Route: 048
     Dates: start: 20151006, end: 20151012
  26. BETAMETHASONE VALERATE GENTAMICIN SULFATE [Concomitant]
     Indication: SKIN DISORDER
     Dosage: PRN
     Dates: start: 20150623
  27. AZD6244 [Suspect]
     Active Substance: SELUMETINIB
     Indication: NON-SMALL CELL LUNG CANCER
     Route: 048
     Dates: start: 20150714, end: 20150720
  28. AZD6244 [Suspect]
     Active Substance: SELUMETINIB
     Indication: NON-SMALL CELL LUNG CANCER
     Route: 048
     Dates: start: 20150721, end: 20150727
  29. AZD6244 [Suspect]
     Active Substance: SELUMETINIB
     Indication: EGFR GENE MUTATION
     Route: 048
     Dates: start: 20150818, end: 20150824
  30. AZD6244 [Suspect]
     Active Substance: SELUMETINIB
     Indication: EGFR GENE MUTATION
     Route: 048
     Dates: start: 20150908, end: 20150914
  31. AZD6244 [Suspect]
     Active Substance: SELUMETINIB
     Indication: EGFR GENE MUTATION
     Route: 048
     Dates: start: 20150929, end: 20151005
  32. AZD6244 [Suspect]
     Active Substance: SELUMETINIB
     Indication: NON-SMALL CELL LUNG CANCER
     Route: 048
     Dates: start: 20151013, end: 20151019
  33. AZD6244 [Suspect]
     Active Substance: SELUMETINIB
     Indication: NON-SMALL CELL LUNG CANCER
     Route: 048
     Dates: start: 20151020, end: 20151020
  34. DEXAMETHASONE. [Concomitant]
     Active Substance: DEXAMETHASONE
     Indication: STOMATITIS
     Dosage: PRN
     Dates: start: 20150714
  35. ALCLOMETASONE DIPROPIONATE. [Concomitant]
     Active Substance: ALCLOMETASONE DIPROPIONATE
     Indication: SKIN DISORDER
     Dosage: PRN
     Dates: start: 20150812
  36. TAGRISSO [Suspect]
     Active Substance: OSIMERTINIB
     Indication: NON-SMALL CELL LUNG CANCER
     Route: 048
     Dates: start: 20150616, end: 20151020
  37. AZD6244 [Suspect]
     Active Substance: SELUMETINIB
     Indication: NON-SMALL CELL LUNG CANCER
     Route: 048
     Dates: start: 20150630, end: 20150706
  38. AZD6244 [Suspect]
     Active Substance: SELUMETINIB
     Indication: NON-SMALL CELL LUNG CANCER
     Route: 048
     Dates: start: 20150811, end: 20150817
  39. AZD6244 [Suspect]
     Active Substance: SELUMETINIB
     Indication: NON-SMALL CELL LUNG CANCER
     Route: 048
     Dates: start: 20150929, end: 20151005
  40. SODIUM GUALENATE [Concomitant]
     Active Substance: SODIUM GUALENATE
     Indication: DERMATITIS ATOPIC
     Dosage: PRN
     Dates: start: 20150714
  41. AZD6244 [Suspect]
     Active Substance: SELUMETINIB
     Indication: NON-SMALL CELL LUNG CANCER
     Route: 048
     Dates: start: 20150616, end: 20150622
  42. AZD6244 [Suspect]
     Active Substance: SELUMETINIB
     Indication: EGFR GENE MUTATION
     Route: 048
     Dates: start: 20150623, end: 20150629
  43. AZD6244 [Suspect]
     Active Substance: SELUMETINIB
     Indication: NON-SMALL CELL LUNG CANCER
     Route: 048
     Dates: start: 20150623, end: 20150629
  44. AZD6244 [Suspect]
     Active Substance: SELUMETINIB
     Indication: EGFR GENE MUTATION
     Route: 048
     Dates: start: 20150630, end: 20150706
  45. AZD6244 [Suspect]
     Active Substance: SELUMETINIB
     Indication: EGFR GENE MUTATION
     Route: 048
     Dates: start: 20150707, end: 20150713
  46. AZD6244 [Suspect]
     Active Substance: SELUMETINIB
     Indication: EGFR GENE MUTATION
     Route: 048
     Dates: start: 20150721, end: 20150727
  47. AZD6244 [Suspect]
     Active Substance: SELUMETINIB
     Indication: NON-SMALL CELL LUNG CANCER
     Route: 048
     Dates: start: 20150901, end: 20150907
  48. AZD6244 [Suspect]
     Active Substance: SELUMETINIB
     Indication: NON-SMALL CELL LUNG CANCER
     Route: 048
     Dates: start: 20150915, end: 20150921
  49. LAFUTIDINE [Concomitant]
     Active Substance: LAFUTIDINE
     Indication: PROPHYLAXIS
     Route: 048
  50. SODIUM VALPROATE [Concomitant]
     Active Substance: VALPROATE SODIUM
     Indication: EPILEPSY
     Route: 048

REACTIONS (1)
  - Pulmonary embolism [Recovering/Resolving]

NARRATIVE: CASE EVENT DATE: 20151021
